FAERS Safety Report 5639189-5 (Version None)
Quarter: 2008Q1

REPORT INFORMATION
  Report Type: 
  Country: None (occurrence: None)
  Receive Date: 20080226
  Receipt Date: 20080125
  Transmission Date: 20080703
  Serious: Yes (Hospitalization)
  Sender: FDA-Public Use
  Company Number: US-ABBOTT-08P-163-0438900-00

PATIENT
  Age: 56 Year
  Sex: Male
  Weight: 121.67 kg

DRUGS (4)
  1. HUMIRA [Suspect]
     Indication: RHEUMATOID ARTHRITIS
     Route: 058
     Dates: start: 20060101, end: 20071201
  2. HUMIRA [Suspect]
     Dates: start: 20080201
  3. NAPROXEN SODIUM [Concomitant]
     Indication: ARTHRALGIA
     Route: 048
  4. NORTRIPTYLINE HYDROCHLORIDE [Concomitant]
     Indication: ARTHRALGIA
     Route: 048

REACTIONS (5)
  - CONTUSION [None]
  - INJURY [None]
  - OEDEMA PERIPHERAL [None]
  - OPEN WOUND [None]
  - PAIN IN EXTREMITY [None]
